FAERS Safety Report 21364156 (Version 1)
Quarter: 2022Q3

REPORT INFORMATION
  Report Type: Spontaneous
  Country: DE (occurrence: DE)
  Receive Date: 20220922
  Receipt Date: 20220922
  Transmission Date: 20221026
  Serious: Yes (Hospitalization, Other)
  Sender: FDA-Public Use
  Company Number: None

PATIENT
  Age: 82 Year
  Sex: Male

DRUGS (11)
  1. SERTRALINE HYDROCHLORIDE [Suspect]
     Active Substance: SERTRALINE HYDROCHLORIDE
     Dosage: 100 MG, DAILY
  2. EDOXABAN [Suspect]
     Active Substance: EDOXABAN
     Dosage: 60 MG, DAILY
  3. METOPROLOL [Concomitant]
     Active Substance: METOPROLOL
     Dosage: 47.5 MG, 1-0-1-0
  4. METFORMIN [Concomitant]
     Active Substance: METFORMIN HYDROCHLORIDE
     Dosage: 500 MG, 1-0-1-0
  5. CIPROFLOXACIN [Concomitant]
     Active Substance: CIPROFLOXACIN
     Dosage: 500 MG, 1-0-1-0
  6. METAMIZOL [Concomitant]
     Active Substance: METAMIZOLE SODIUM
     Dosage: 500 MG, AS NEEDED
  7. SITAGLIPTIN [Concomitant]
     Active Substance: SITAGLIPTIN
     Dosage: 100 MG, 1-0-0-0
  8. FOLIC ACID [Concomitant]
     Active Substance: FOLIC ACID
     Dosage: 5 MG, 1-0-0-0
  9. FERROUS GLYCINE SULFATE [Concomitant]
     Active Substance: FERROUS GLYCINE SULFATE
     Dosage: 100 MG, 1-0-0-0
  10. SIMVASTATIN [Concomitant]
     Active Substance: SIMVASTATIN
     Dosage: 20 MG, 0-0-1-0
  11. BISACODYL [Concomitant]
     Active Substance: BISACODYL
     Dosage: 10 MG, AS NEEDED

REACTIONS (15)
  - Acute respiratory failure [Unknown]
  - Haematochezia [Unknown]
  - Renal impairment [Unknown]
  - Systemic infection [Unknown]
  - Gastrointestinal haemorrhage [Unknown]
  - Aspiration [Unknown]
  - Anaemia [Unknown]
  - Tachypnoea [Unknown]
  - Electrocardiogram abnormal [Unknown]
  - General physical health deterioration [Unknown]
  - Dehydration [Unknown]
  - Tachycardia [Unknown]
  - Vomiting [Unknown]
  - Dyspnoea [Unknown]
  - Cyanosis [Unknown]
